FAERS Safety Report 5934271-7 (Version None)
Quarter: 2008Q4

REPORT INFORMATION
  Report Type: 
  Country: None (occurrence: None)
  Receive Date: 20081029
  Receipt Date: 20081020
  Transmission Date: 20090506
  Serious: Yes (Other)
  Sender: FDA-Public Use
  Company Number: PHHY2008SE25287

PATIENT
  Sex: Male

DRUGS (7)
  1. LEPONEX [Suspect]
     Indication: OBSESSIVE THOUGHTS
     Dosage: 400MG/DAY
     Dates: end: 20080501
  2. LEPONEX [Suspect]
     Indication: PARANOIA
     Dosage: 300MG/DAY
     Dates: start: 20080501
  3. LEPONEX [Suspect]
     Indication: SCHIZOPHRENIA
     Dosage: UNK
     Dates: start: 19980101
  4. FOLACIN [Concomitant]
  5. VITAMIN B-12 [Concomitant]
  6. RISPERDAL [Concomitant]
  7. BENZODIAZEPINES [Concomitant]

REACTIONS (4)
  - BLOOD CREATININE INCREASED [None]
  - DYSARTHRIA [None]
  - FATIGUE [None]
  - SALIVARY HYPERSECRETION [None]
